FAERS Safety Report 4750143-8 (Version None)
Quarter: 2005Q3

REPORT INFORMATION
  Report Type: 
  Country: None (occurrence: None)
  Receive Date: 20050823
  Receipt Date: 20050812
  Transmission Date: 20060218
  Serious: No
  Sender: FDA-Public Use
  Company Number: US-BOEHRINGER INGELHEIM PHARMACEUTICALS, INC.-2005-DE-03171GD

PATIENT

DRUGS (4)
  1. NEVIRAPINE [Suspect]
     Route: 015
  2. LAMIVUDINE [Suspect]
     Route: 015
  3. STAVUDINE [Suspect]
     Route: 015
  4. ZIDOVUDINE [Suspect]
     Route: 015

REACTIONS (6)
  - DIASTOLIC DYSFUNCTION [None]
  - DRUG EXPOSURE DURING PREGNANCY [None]
  - FOETAL GROWTH RETARDATION [None]
  - INDUCED LABOUR [None]
  - KAPOSI'S SARCOMA [None]
  - NEONATAL DISORDER [None]
